FAERS Safety Report 4887181-0 (Version None)
Quarter: 2005Q4

REPORT INFORMATION
  Report Type: 
  Country: None (occurrence: None)
  Receive Date: 20051223
  Receipt Date: 20041029
  Transmission Date: 20060501
  Serious: Yes (Hospitalization, Other)
  Sender: FDA-Public Use
  Company Number: USA030638738

PATIENT
  Age: 87 Year
  Sex: Male
  Weight: 91 kg

DRUGS (5)
  1. HUMALOG [Suspect]
     Indication: DIABETES MELLITUS
     Dosage: 18 U/DAY
     Dates: start: 20010101
  2. HUMULIN U [Suspect]
     Indication: DIABETES MELLITUS
  3. HUMULIN N [Suspect]
     Indication: DIABETES MELLITUS
     Dates: end: 20010101
  4. ULTRA-LENTE ILETIN INSULIN [Suspect]
     Indication: DIABETES MELLITUS
  5. LANTUS [Concomitant]

REACTIONS (6)
  - BLOOD GLUCOSE INCREASED [None]
  - CARDIAC DISORDER [None]
  - HYPOACUSIS [None]
  - INCORRECT DOSE ADMINISTERED [None]
  - MOTOR DYSFUNCTION [None]
  - MYOCARDIAL INFARCTION [None]
